FAERS Safety Report 7949780-9 (Version None)
Quarter: 2011Q4

REPORT INFORMATION
  Report Type: 
  Country: None (occurrence: None)
  Receive Date: 20111130
  Receipt Date: 20111122
  Transmission Date: 20120403
  Serious: Yes (Other)
  Sender: FDA-Public Use
  Company Number: PHHY2011BE94204

PATIENT
  Age: 44 Year
  Sex: Female

DRUGS (5)
  1. DUOVENT [Concomitant]
     Indication: CHRONIC OBSTRUCTIVE PULMONARY DISEASE
  2. SERTRALINE HYDROCHLORIDE [Concomitant]
     Dosage: 100 MG, UNK
  3. LORAZEPAM [Concomitant]
     Dosage: 1 MG, UNK
  4. ONBREZ [Suspect]
     Indication: CHRONIC OBSTRUCTIVE PULMONARY DISEASE
     Dosage: 150 UG DAILY
     Dates: start: 20110823, end: 20111001
  5. ELTHYRONE [Concomitant]
     Dosage: 50 MG, UNK

REACTIONS (9)
  - LACRIMATION INCREASED [None]
  - WHEEZING [None]
  - CHEST PAIN [None]
  - FEELING ABNORMAL [None]
  - SALIVARY HYPERSECRETION [None]
  - COUGH [None]
  - MYOCARDIAL INFARCTION [None]
  - RHINORRHOEA [None]
  - DYSPHAGIA [None]
